FAERS Safety Report 4454114-0 (Version None)
Quarter: 2004Q3

REPORT INFORMATION
  Report Type: 
  Country: None (occurrence: None)
  Receive Date: 20040826
  Receipt Date: 20040507
  Transmission Date: 20050211
  Serious: No
  Sender: FDA-Public Use
  Company Number: WAES 0405USA00537

PATIENT
  Age: 43 Year
  Sex: Female
  Weight: 72.5755 kg

DRUGS (1)
  1. ZETIA [Suspect]
     Indication: HYPERCHOLESTEROLAEMIA
     Dosage: 10 MG/DAILY/PO
     Route: 048
     Dates: start: 20031201

REACTIONS (3)
  - MYALGIA [None]
  - PAIN IN EXTREMITY [None]
  - SYNOVITIS [None]
